FAERS Safety Report 26193241 (Version 1)
Quarter: 2025Q4

REPORT INFORMATION
  Report Type: Report from Study
  Country: US (occurrence: None)
  Receive Date: 20251223
  Receipt Date: 20251223
  Transmission Date: 20260117
  Serious: Yes (Other)
  Sender: UCB
  Company Number: US-UCBSA-2025081859

PATIENT
  Age: 41 Year

DRUGS (3)
  1. BIMEKIZUMAB [Suspect]
     Active Substance: BIMEKIZUMAB
     Indication: Psoriasis
     Dosage: 320 MILLIGRAM, EV 4 WEEKS
  2. BIMEKIZUMAB [Suspect]
     Active Substance: BIMEKIZUMAB
     Indication: Psoriatic arthropathy
     Dosage: 320 MILLIGRAM, EV 8 WEEKS
  3. CLOBETASOL [Concomitant]
     Active Substance: CLOBETASOL
     Dosage: APPLY TO SCALP OHS X 2 WEEKS THEN 2-3 X WEEKLY FOR MAINTENANCE

REACTIONS (10)
  - Psoriatic arthropathy [Not Recovered/Not Resolved]
  - Injection site pain [Recovering/Resolving]
  - Injection site laceration [Recovering/Resolving]
  - Oral candidiasis [Recovering/Resolving]
  - Psoriasis [Recovering/Resolving]
  - Wrong technique in product usage process [Unknown]
  - Drug ineffective [Unknown]
  - Incorrect dose administered [Unknown]
  - Therapy interrupted [Unknown]
  - Insurance issue [Unknown]
